FAERS Safety Report 9849980 (Version 2)
Quarter: 2014Q2

REPORT INFORMATION
  Report Type: Spontaneous
  Country: US (occurrence: US)
  Receive Date: 20140128
  Receipt Date: 20140602
  Transmission Date: 20141212
  Serious: Yes (Hospitalization, Other)
  Sender: FDA-Public Use
  Company Number: US-BAYER-2014-011083

PATIENT
  Age: 41 Year
  Sex: Female

DRUGS (1)
  1. MIRENA [Suspect]
     Indication: CONTRACEPTION
     Dosage: 20 MCG/24HR, CONT
     Route: 015
     Dates: start: 20090604, end: 20111228

REACTIONS (10)
  - Uterine perforation [None]
  - Genital haemorrhage [None]
  - Abdominal pain lower [None]
  - Amenorrhoea [None]
  - Pelvic pain [None]
  - Injury [None]
  - Emotional distress [None]
  - Medical device discomfort [None]
  - Internal injury [None]
  - Device issue [None]
